FAERS Safety Report 15981131 (Version 1)
Quarter: 2019Q1

REPORT INFORMATION
  Report Type: Spontaneous
  Country: US (occurrence: US)
  Receive Date: 20190218
  Receipt Date: 20190218
  Transmission Date: 20190418
  Serious: No
  Sender: FDA-Public Use
  Company Number: None

PATIENT
  Age: 5 Week
  Sex: Female
  Weight: 3.47 kg

DRUGS (1)
  1. DG BABY GRIPE WATER [Suspect]
     Active Substance: DIETARY SUPPLEMENT
     Indication: HICCUPS
     Dosage: ?          QUANTITY:1 TEASPOON(S);?
     Route: 048
     Dates: start: 20190214, end: 20190217

REACTIONS (1)
  - Vomiting [None]

NARRATIVE: CASE EVENT DATE: 20190214
